FAERS Safety Report 21748040 (Version 1)
Quarter: 2022Q4

REPORT INFORMATION
  Report Type: Spontaneous
  Country: IN (occurrence: None)
  Receive Date: 20221217
  Receipt Date: 20221217
  Transmission Date: 20230113
  Serious: Yes (Other)
  Sender: FDA-Public Use
  Company Number: None

PATIENT
  Age: 30 Year
  Sex: Female
  Weight: 66 kg

DRUGS (1)
  1. IRON SUCROSE [Suspect]
     Active Substance: IRON SUCROSE

REACTIONS (4)
  - Nasopharyngitis [None]
  - Pyrexia [None]
  - Pruritus [None]
  - Rash [None]

NARRATIVE: CASE EVENT DATE: 20220512
